FAERS Safety Report 9973073 (Version 2)
Quarter: 2014Q1

REPORT INFORMATION
  Report Type: Spontaneous
  Country: US (occurrence: US)
  Receive Date: 20140306
  Receipt Date: 20140307
  Transmission Date: 20141002
  Serious: Yes (Hospitalization, Other)
  Sender: FDA-Public Use
  Company Number: US-PFIZER INC-2014062619

PATIENT
  Age: 55 Year
  Sex: Female
  Weight: 65.76 kg

DRUGS (3)
  1. CHANTIX [Suspect]
     Indication: SMOKING CESSATION THERAPY
     Dosage: 0.5 MG, 1X/DAY
     Route: 048
  2. CHANTIX [Suspect]
     Dosage: 0.5 MG, 1X/DAY
     Route: 048
  3. CHANTIX [Suspect]
     Dosage: UNK
     Route: 048

REACTIONS (5)
  - Pneumonia [Unknown]
  - Rib fracture [Unknown]
  - Lung disorder [Unknown]
  - Cough [Unknown]
  - Nausea [Unknown]
